FAERS Safety Report 8003658-3 (Version None)
Quarter: 2011Q4

REPORT INFORMATION
  Report Type: 
  Country: None (occurrence: None)
  Receive Date: 20111222
  Receipt Date: 20111215
  Transmission Date: 20120403
  Serious: Yes (Hospitalization)
  Sender: FDA-Public Use
  Company Number: US-ACTELION-A-US2011-58483

PATIENT

DRUGS (4)
  1. REVATIO [Concomitant]
  2. TRACLEER [Suspect]
     Indication: PULMONARY ARTERIAL HYPERTENSION
     Dosage: 125
     Route: 048
     Dates: start: 20110616
  3. COUMADIN [Concomitant]
  4. TRACLEER [Suspect]
     Dosage: 62.5
     Route: 048
     Dates: start: 20080619, end: 20080719

REACTIONS (3)
  - GASTRITIS [None]
  - NAUSEA [None]
  - VOMITING [None]
